FAERS Safety Report 21588533 (Version 1)
Quarter: 2022Q4

REPORT INFORMATION
  Report Type: Spontaneous
  Country: US (occurrence: US)
  Receive Date: 20221114
  Receipt Date: 20221114
  Transmission Date: 20230113
  Serious: No
  Sender: FDA-Public Use
  Company Number: US-JNJFOC-20221059634

PATIENT
  Age: 51 Year
  Sex: Male

DRUGS (1)
  1. RISPERDAL [Suspect]
     Active Substance: RISPERIDONE
     Indication: Anxiety
     Route: 065

REACTIONS (4)
  - Drug ineffective [Unknown]
  - Insomnia [Unknown]
  - Depression [Unknown]
  - Wrong technique in product usage process [Unknown]
